FAERS Safety Report 7012352-7 (Version None)
Quarter: 2010Q3

REPORT INFORMATION
  Report Type: 
  Country: None (occurrence: None)
  Receive Date: 20100924
  Receipt Date: 20100915
  Transmission Date: 20110219
  Serious: Yes (Hospitalization, Other)
  Sender: FDA-Public Use
  Company Number: PHHY2010BR02084

PATIENT
  Sex: Female
  Weight: 80 kg

DRUGS (4)
  1. DIOVAN [Suspect]
     Indication: HYPERTENSION
     Dosage: 1 TABLET (320 MG) PER DAY
     Route: 048
     Dates: start: 20070101
  2. PURAN T4 [Concomitant]
     Dosage: 1 TABLET IN FASTING
  3. MUD POMADE [Concomitant]
     Indication: ANTIINFLAMMATORY THERAPY
     Route: 061
  4. SYNTHROID [Concomitant]

REACTIONS (19)
  - BREAST CYST [None]
  - CARDIAC ARREST [None]
  - DEPRESSION [None]
  - DUODENITIS [None]
  - FLUID RETENTION [None]
  - GASTRITIS [None]
  - HYPERTENSION [None]
  - LYMPHADENECTOMY [None]
  - MEMORY IMPAIRMENT [None]
  - NEOPLASM MALIGNANT [None]
  - NERVOUSNESS [None]
  - OEDEMA PERIPHERAL [None]
  - PANIC REACTION [None]
  - POST PROCEDURAL HAEMORRHAGE [None]
  - RENAL CYST [None]
  - SURGERY [None]
  - THYROIDECTOMY [None]
  - THYROIDITIS [None]
  - WEIGHT INCREASED [None]
